FAERS Safety Report 7214748-7 (Version None)
Quarter: 2011Q1

REPORT INFORMATION
  Report Type: 
  Country: None (occurrence: None)
  Receive Date: 20110107
  Receipt Date: 20100121
  Transmission Date: 20110831
  Serious: No
  Sender: FDA-Public Use
  Company Number: A0840743A

PATIENT
  Age: 71 Year
  Sex: Female

DRUGS (13)
  1. COQ10 [Concomitant]
  2. LOVAZA [Suspect]
     Dosage: 1G TWICE PER DAY
     Route: 048
     Dates: start: 20090601
  3. TYLENOL EXTRA STRENGTH [Concomitant]
  4. VITAMIN D [Concomitant]
  5. WELCHOL [Concomitant]
  6. HYDROCHLOROTHIAZIDE [Concomitant]
  7. CALCIUM CITRATE [Concomitant]
  8. ZYFLO [Concomitant]
  9. METAMUCIL-2 [Concomitant]
  10. ASCORBIC ACID [Concomitant]
  11. VITAMIN B-12 [Concomitant]
     Route: 060
  12. ATENOLOL [Concomitant]
  13. PLAVIX [Concomitant]

REACTIONS (2)
  - LOW DENSITY LIPOPROTEIN INCREASED [None]
  - ARTHRITIS [None]
